FAERS Safety Report 9790136 (Version 2)
Quarter: 2014Q1

REPORT INFORMATION
  Report Type: Spontaneous
  Country: US (occurrence: US)
  Receive Date: 20131231
  Receipt Date: 20140121
  Transmission Date: 20141002
  Serious: No
  Sender: FDA-Public Use
  Company Number: US-TEVA-453339USA

PATIENT
  Age: 27 Year
  Sex: Female
  Weight: 47.67 kg

DRUGS (1)
  1. PARAGARD 380A [Suspect]
     Indication: CONTRACEPTION
     Route: 015
     Dates: start: 20131212, end: 20131219

REACTIONS (4)
  - Pyrexia [Recovered/Resolved]
  - Dysmenorrhoea [Recovered/Resolved]
  - Pain [Recovered/Resolved]
  - Vaginal haemorrhage [Unknown]
